FAERS Safety Report 12156835 (Version 1)
Quarter: 2016Q1

REPORT INFORMATION
  Report Type: Other
  Country: US (occurrence: US)
  Receive Date: 20160307
  Receipt Date: 20160307
  Transmission Date: 20160526
  Serious: Yes (Other)
  Sender: FDA-Public Use
  Company Number: US-GUTHY-RENKER LLC-1048761

PATIENT
  Age: 14 Year
  Sex: Female

DRUGS (2)
  1. PROACTIV CLEAR PURIFYING MASK [Suspect]
     Active Substance: SULFUR
     Indication: ACNE
     Route: 061
     Dates: start: 20160129
  2. ZYRTEC [Concomitant]
     Active Substance: CETIRIZINE HYDROCHLORIDE

REACTIONS (3)
  - Angioedema [Recovered/Resolved]
  - Skin disorder [None]
  - Throat tightness [None]

NARRATIVE: CASE EVENT DATE: 20160129
